FAERS Safety Report 8965825 (Version 1)
Quarter: 2012Q4

REPORT INFORMATION
  Report Type: Spontaneous
  Country: US (occurrence: None)
  Receive Date: 20121206
  Receipt Date: 20121206
  Transmission Date: 20130627
  Serious: Yes (Hospitalization)
  Sender: FDA-Public Use
  Company Number: 091103-000044

PATIENT
  Age: 38 Year
  Sex: Female

DRUGS (2)
  1. MEANINGFUL BEAUTY ANTIOXIDANT DAY CREME SPF 20 [Suspect]
     Dosage: once daily dermal
     Dates: start: 20091029, end: 20091102
  2. MEANINGFUL BEAUTY MAINTENANCE 1 PF 20 [Suspect]
     Dates: start: 20091029, end: 20091102

REACTIONS (4)
  - Application site erythema [None]
  - Application site pruritus [None]
  - Application site urticaria [None]
  - Swelling face [None]
